FAERS Safety Report 24437322 (Version 1)
Quarter: 2024Q4

REPORT INFORMATION
  Report Type: Spontaneous
  Country: US (occurrence: None)
  Receive Date: 20241011
  Receipt Date: 20241011
  Transmission Date: 20250115
  Serious: Yes (Hospitalization)
  Sender: Public
  Company Number: None

PATIENT
  Age: 55 Year
  Sex: Female

DRUGS (1)
  1. KISQALI [Suspect]
     Active Substance: RIBOCICLIB
     Indication: Breast cancer female
     Dosage: OTHER FREQUENCY : DAILY FOR 21 DAYS ON, THEN 7 DAYS OFF;?
     Dates: start: 20240925

REACTIONS (2)
  - Rash [None]
  - Flushing [None]

NARRATIVE: CASE EVENT DATE: 20240925
